FAERS Safety Report 21236106 (Version 1)
Quarter: 2022Q3

REPORT INFORMATION
  Report Type: Spontaneous
  Country: GB (occurrence: GB)
  Receive Date: 20220822
  Receipt Date: 20220822
  Transmission Date: 20221027
  Serious: Yes (Other)
  Sender: FDA-Public Use
  Company Number: GB-MHRA-MED-202208031329021650-SDKNR

PATIENT
  Age: 40 Year
  Sex: Male

DRUGS (4)
  1. VENLAFAXINE [Interacting]
     Active Substance: VENLAFAXINE HYDROCHLORIDE
     Indication: Adverse drug reaction
     Dosage: 150MG ONCE A DAY AT NIGHT; ;
     Dates: start: 20220201
  2. DIAZEPAM [Interacting]
     Active Substance: DIAZEPAM
     Indication: Post laminectomy syndrome
  3. GABAPENTIN [Interacting]
     Active Substance: GABAPENTIN
     Indication: Neuropathy peripheral
  4. MORPHINE [Interacting]
     Active Substance: MORPHINE
     Indication: Post laminectomy syndrome

REACTIONS (2)
  - Hallucination [Not Recovered/Not Resolved]
  - Drug interaction [Not Recovered/Not Resolved]

NARRATIVE: CASE EVENT DATE: 20220301
